FAERS Safety Report 8070108-0 (Version None)
Quarter: 2012Q1

REPORT INFORMATION
  Report Type: 
  Country: None (occurrence: None)
  Receive Date: 20120119
  Receipt Date: 20120112
  Transmission Date: 20120608
  Serious: Yes (Hospitalization, Other)
  Sender: FDA-Public Use
  Company Number: 2010SP009716

PATIENT
  Age: 30 Year
  Sex: Female
  Weight: 70.7611 kg

DRUGS (7)
  1. CEPHALEXIN [Concomitant]
  2. NUVARING [Suspect]
     Indication: CONTRACEPTION
     Dosage: VAG
     Route: 067
     Dates: start: 20071203, end: 20080208
  3. NUVARING [Suspect]
     Indication: VAGINAL HAEMORRHAGE
     Dosage: VAG
     Route: 067
     Dates: start: 20071203, end: 20080208
  4. HYDROCODONE BITARTRATE AND ACETAMINOPHEN [Concomitant]
  5. MEDROXYPROGESTERONE [Suspect]
     Indication: CONTRACEPTION
     Dates: start: 20080208
  6. SYNTHROID [Concomitant]
  7. TOBRADEX [Concomitant]

REACTIONS (15)
  - HEAD INJURY [None]
  - INTERVERTEBRAL DISC DEGENERATION [None]
  - MENTAL DISORDER [None]
  - HEADACHE [None]
  - BLOOD THYROID STIMULATING HORMONE DECREASED [None]
  - GOITRE [None]
  - PULMONARY EMBOLISM [None]
  - DEPRESSION [None]
  - BREAST SWELLING [None]
  - MENORRHAGIA [None]
  - EMOTIONAL DISORDER [None]
  - FALL [None]
  - FRACTURED COCCYX [None]
  - AUTOIMMUNE THYROIDITIS [None]
  - BREAST PAIN [None]
